FAERS Safety Report 6608436-5 (Version None)
Quarter: 2010Q1

REPORT INFORMATION
  Report Type: 
  Country: None (occurrence: None)
  Receive Date: 20100301
  Receipt Date: 20100223
  Transmission Date: 20100710
  Serious: Yes (Hospitalization)
  Sender: FDA-Public Use
  Company Number: US-ELI_LILLY_AND_COMPANY-US201002006524

PATIENT
  Sex: Male

DRUGS (3)
  1. HUMALOG MIX 75/25 [Suspect]
     Indication: DIABETES MELLITUS
     Dosage: 35 U, 2/D
  2. METFORMIN HYDROCHLORIDE [Concomitant]
     Dosage: 500 MG, 2/D
     Dates: start: 19950101
  3. GLIPIZIDE [Concomitant]
     Dosage: 10 MG, 2/D
     Dates: start: 19950101

REACTIONS (4)
  - BLOOD GLUCOSE DECREASED [None]
  - BLOOD GLUCOSE INCREASED [None]
  - DRUG INEFFECTIVE [None]
  - MYOCARDIAL INFARCTION [None]
